FAERS Safety Report 13861602 (Version 3)
Quarter: 2018Q1

REPORT INFORMATION
  Report Type: Report from Study
  Country: US (occurrence: US)
  Receive Date: 20170811
  Receipt Date: 20180109
  Transmission Date: 20180508
  Serious: Yes (Hospitalization)
  Sender: FDA-Public Use
  Company Number: US-EXELIXIS-CABO-17010067

PATIENT
  Sex: Male

DRUGS (32)
  1. CITALOPRAM [Concomitant]
     Active Substance: CITALOPRAM HYDROBROMIDE
  2. WELCHOL [Concomitant]
     Active Substance: COLESEVELAM HYDROCHLORIDE
  3. CLARITIN [Concomitant]
     Active Substance: LORATADINE
  4. NIACIN. [Concomitant]
     Active Substance: NIACIN
  5. CENTRUM SILVER [Concomitant]
     Active Substance: MINERALS\VITAMINS
  6. NEXIUM [Concomitant]
     Active Substance: ESOMEPRAZOLE MAGNESIUM
  7. NYSTATIN. [Concomitant]
     Active Substance: NYSTATIN
  8. COMETRIQ [Suspect]
     Active Substance: CABOZANTINIB S-MALATE
     Indication: BONE MARROW DISORDER
     Dosage: 20 MG, QD, 3 WEEKS ON 1 WEEK OFF
     Dates: end: 2017
  9. COMETRIQ [Suspect]
     Active Substance: CABOZANTINIB S-MALATE
     Dosage: 20 MG, QD, 3 WEEKS ON 1 WEEK OFF
     Dates: start: 2017, end: 2017
  10. CLONAZEPAM. [Concomitant]
     Active Substance: CLONAZEPAM
  11. AMBIEN [Concomitant]
     Active Substance: ZOLPIDEM TARTRATE
  12. DIPHENOXYLATE HCL [Concomitant]
  13. TANDEM PLUS [Concomitant]
     Active Substance: CALCIUM PANTOTHENATE\CUPRIC SULFATE\CYANOCOBALAMIN\FERROUS ASPARTO GLYCINATE\FERROUS FUMARATE\FOLIC ACID\MAGNESIUM SULFATE\NIACINAMIDE\PYRIDOXINE HYDROCHLORIDE\RIBOFLAVIN\SODIUM ASCORBATE\THIAMINE MONONITRATE\ZINC SULFATE
  14. COMETRIQ [Suspect]
     Active Substance: CABOZANTINIB S-MALATE
     Indication: THYROID CANCER
     Dosage: 140 MG, QD
     Route: 048
     Dates: start: 20140905, end: 20140919
  15. ATORVASTATIN CALCIUM. [Concomitant]
     Active Substance: ATORVASTATIN CALCIUM
  16. WARFARIN SODIUM. [Concomitant]
     Active Substance: WARFARIN SODIUM
  17. FENOFIBRATE. [Concomitant]
     Active Substance: FENOFIBRATE
  18. LOMOTIL [Concomitant]
     Active Substance: ATROPINE SULFATE\DIPHENOXYLATE HYDROCHLORIDE
  19. LIDOCAINE. [Concomitant]
     Active Substance: LIDOCAINE
  20. BENADRYL [Concomitant]
     Active Substance: DIPHENHYDRAMINE HYDROCHLORIDE
  21. LEVOTHYROXIN [Concomitant]
     Active Substance: LEVOTHYROXINE
  22. CALCIUM + VITAMIN D3 [Concomitant]
     Active Substance: CALCIUM CARBONATE\CHOLECALCIFEROL
  23. COMETRIQ [Suspect]
     Active Substance: CABOZANTINIB S-MALATE
     Dosage: 20 MG, QD
     Route: 048
     Dates: start: 201708
  24. PRILOSEC [Concomitant]
     Active Substance: OMEPRAZOLE MAGNESIUM
  25. FLOMAX [Concomitant]
     Active Substance: TAMSULOSIN HYDROCHLORIDE
  26. MAGNESIUM OXIDE. [Concomitant]
     Active Substance: MAGNESIUM OXIDE
  27. TEMAZEPAM. [Concomitant]
     Active Substance: TEMAZEPAM
  28. ASPIRIN. [Concomitant]
     Active Substance: ASPIRIN
  29. HYDROCODONE BITARTRATE. [Concomitant]
     Active Substance: HYDROCODONE BITARTRATE
  30. NASONEX [Concomitant]
     Active Substance: MOMETASONE FUROATE
  31. MAALOX ANTACID [Concomitant]
     Active Substance: ALUMINUM HYDROXIDE\DIMETHICONE\MAGNESIUM HYDROXIDE
  32. LOSARTAN. [Concomitant]
     Active Substance: LOSARTAN

REACTIONS (3)
  - Drug ineffective [Unknown]
  - Oesophageal disorder [Unknown]
  - Dysphagia [Unknown]
